FAERS Safety Report 9823399 (Version 2)
Quarter: 2014Q1

REPORT INFORMATION
  Report Type: Spontaneous
  Country: US (occurrence: US)
  Receive Date: 20140116
  Receipt Date: 20140116
  Transmission Date: 20141002
  Serious: No
  Sender: FDA-Public Use
  Company Number: US-GILEAD-2010-0034597

PATIENT
  Age: 53 Year
  Sex: Female

DRUGS (5)
  1. LETAIRIS [Suspect]
     Indication: PULMONARY HYPERTENSION
     Route: 048
     Dates: start: 20101206
  2. ASPIRIN [Concomitant]
  3. MOBIC [Concomitant]
  4. GABAPENTIN [Concomitant]
  5. FOLIC ACID [Concomitant]

REACTIONS (4)
  - Chest discomfort [Recovered/Resolved]
  - Nausea [Unknown]
  - Rash [Unknown]
  - Pruritus [Unknown]
